FAERS Safety Report 11177247 (Version 1)
Quarter: 2015Q2

REPORT INFORMATION
  Report Type: Spontaneous
  Country: MX (occurrence: MX)
  Receive Date: 20150610
  Receipt Date: 20150610
  Transmission Date: 20150821
  Serious: Yes (Other)
  Sender: FDA-Public Use
  Company Number: MX-ROCHE-1591633

PATIENT
  Sex: Male

DRUGS (3)
  1. PROCTO GLYVENOL [Concomitant]
     Indication: HAEMORRHOIDS
     Route: 065
     Dates: start: 201504
  2. UNSPECIFIED DRUG [Concomitant]
     Active Substance: UNSPECIFIED INGREDIENT
     Indication: INSOMNIA
     Dosage: 1/4- UNKNOWN DOSE
     Route: 065
  3. RIVOTRIL [Suspect]
     Active Substance: CLONAZEPAM
     Indication: PRODUCT USED FOR UNKNOWN INDICATION
     Route: 065
     Dates: end: 20150602

REACTIONS (2)
  - Visual impairment [Recovering/Resolving]
  - Hearing impaired [Unknown]
